FAERS Safety Report 6930288-4 (Version None)
Quarter: 2010Q3

REPORT INFORMATION
  Report Type: 
  Country: None (occurrence: None)
  Receive Date: 20100818
  Receipt Date: 20100806
  Transmission Date: 20110219
  Serious: Yes (Other)
  Sender: FDA-Public Use
  Company Number: US-ROCHE-717691

PATIENT
  Sex: Male
  Weight: 77.1 kg

DRUGS (18)
  1. ACTEMRA [Suspect]
     Dosage: FORM: INFUSION
     Route: 042
     Dates: start: 20100428
  2. ACTEMRA [Suspect]
     Route: 042
  3. ACTEMRA [Suspect]
     Route: 042
     Dates: start: 20100601, end: 20100723
  4. PLAQUENIL [Concomitant]
     Route: 048
  5. MEDROL [Concomitant]
     Route: 048
  6. VITAMINUM D [Concomitant]
     Dosage: DRUG NAME: VITAMIN D
  7. CELEBREX [Concomitant]
     Indication: ANTIINFLAMMATORY THERAPY
     Route: 048
  8. SYNTHROID [Concomitant]
     Indication: THYROID DISORDER
     Route: 048
  9. PROZAC [Concomitant]
     Indication: DEPRESSION
     Route: 048
  10. PAMELOR [Concomitant]
     Dosage: EVERY NIGHT
     Route: 048
  11. FOSAMAX [Concomitant]
     Indication: OSTEOPOROSIS
     Route: 048
  12. ANDROGEL [Concomitant]
     Route: 061
  13. PREVACID [Concomitant]
     Route: 048
  14. ARAVA [Concomitant]
     Route: 048
  15. LOMOTIL [Concomitant]
  16. DARVON-N [Concomitant]
     Dosage: EVERY NIGHT
     Route: 048
  17. IBUPROFEN [Concomitant]
  18. VICOPROFEN [Concomitant]
     Route: 048

REACTIONS (1)
  - SQUAMOUS CELL CARCINOMA [None]
